FAERS Safety Report 25805447 (Version 1)
Quarter: 2025Q3

REPORT INFORMATION
  Report Type: Spontaneous
  Country: UA (occurrence: UA)
  Receive Date: 20250916
  Receipt Date: 20250916
  Transmission Date: 20251021
  Serious: Yes (Death, Life-Threatening)
  Sender: BOEHRINGER INGELHEIM
  Company Number: UA-BoehringerIngelheim-2025-BI-095371

PATIENT
  Age: 80 Year
  Sex: Female

DRUGS (1)
  1. PRADAXA [Suspect]
     Active Substance: DABIGATRAN ETEXILATE MESYLATE
     Indication: Atrial fibrillation

REACTIONS (1)
  - Haemorrhagic transformation stroke [Fatal]

NARRATIVE: CASE EVENT DATE: 20250802
